FAERS Safety Report 14681573 (Version 1)
Quarter: 2018Q1

REPORT INFORMATION
  Report Type: Spontaneous
  Country: US (occurrence: US)
  Receive Date: 20180326
  Receipt Date: 20180326
  Transmission Date: 20180509
  Serious: No
  Sender: FDA-Public Use
  Company Number: US-KASTLE THERAPEUTICS, LLC-2017KAS000054

PATIENT
  Age: 39 Year
  Sex: Female

DRUGS (2)
  1. KYNAMRO [Suspect]
     Active Substance: MIPOMERSEN SODIUM
     Route: 058
     Dates: start: 20170301
  2. KYNAMRO [Suspect]
     Active Substance: MIPOMERSEN SODIUM
     Indication: TYPE IIA HYPERLIPIDAEMIA
     Route: 058
     Dates: start: 20170103, end: 20170916

REACTIONS (9)
  - Dysgeusia [Unknown]
  - Injection site pain [Recovered/Resolved]
  - Nausea [Unknown]
  - Sinus disorder [Unknown]
  - Decreased appetite [Unknown]
  - Influenza [Recovered/Resolved]
  - Inappropriate schedule of drug administration [Unknown]
  - Injection site swelling [Recovered/Resolved]
  - Drug dose omission [Recovered/Resolved]

NARRATIVE: CASE EVENT DATE: 201710
